FAERS Safety Report 24785771 (Version 2)
Quarter: 2025Q1

REPORT INFORMATION
  Report Type: Spontaneous
  Country: JP (occurrence: JP)
  Receive Date: 20241229
  Receipt Date: 20250120
  Transmission Date: 20250409
  Serious: Yes (Hospitalization, Other)
  Sender: GLAXOSMITHKLINE
  Company Number: JP-GSK-JP2024JPN163774

PATIENT

DRUGS (9)
  1. LAMICTAL [Suspect]
     Active Substance: LAMOTRIGINE
     Indication: Depression
     Dosage: 25 MG, 1D
     Route: 048
  2. LITHIUM CARBONATE [Suspect]
     Active Substance: LITHIUM CARBONATE
     Indication: Depression
     Dosage: 400 MG, 1D
     Route: 048
  3. LEVOFLOXACIN [Suspect]
     Active Substance: LEVOFLOXACIN
     Indication: Hepatitis
     Dosage: 500 MG, 1D
     Route: 048
     Dates: start: 20241202
  4. CLONAZEPAM [Concomitant]
     Active Substance: CLONAZEPAM
     Route: 048
  5. DAYVIGO [Concomitant]
     Active Substance: LEMBOREXANT
     Route: 048
  6. TRAZODONE [Concomitant]
     Active Substance: TRAZODONE HYDROCHLORIDE
     Route: 048
  7. QUETIAPINE [Concomitant]
     Active Substance: QUETIAPINE
     Route: 048
  8. CHLORPROMAZINE [Concomitant]
     Active Substance: CHLORPROMAZINE
     Route: 048
  9. QUETIAPINE [Concomitant]
     Active Substance: QUETIAPINE
     Route: 048

REACTIONS (4)
  - Stevens-Johnson syndrome [Recovering/Resolving]
  - Drug reaction with eosinophilia and systemic symptoms [Recovering/Resolving]
  - Human herpesvirus 6 infection reactivation [Unknown]
  - Product use in unapproved indication [Unknown]

NARRATIVE: CASE EVENT DATE: 20241202
